FAERS Safety Report 10853022 (Version 1)
Quarter: 2015Q1

REPORT INFORMATION
  Report Type: Spontaneous
  Country: US (occurrence: US)
  Receive Date: 20150223
  Receipt Date: 20150223
  Transmission Date: 20150721
  Serious: No
  Sender: FDA-Public Use
  Company Number: US-TEVA-495261USA

PATIENT
  Sex: Male

DRUGS (1)
  1. DISOPYRAMIDE [Suspect]
     Active Substance: DISOPYRAMIDE

REACTIONS (5)
  - Hypotension [Unknown]
  - Urticaria [Unknown]
  - Drug effect decreased [Unknown]
  - Pruritus [Unknown]
  - Bradycardia [Unknown]
